FAERS Safety Report 10036537 (Version 3)
Quarter: 2014Q2

REPORT INFORMATION
  Report Type: Spontaneous
  Country: DE (occurrence: DE)
  Receive Date: 20140326
  Receipt Date: 20140506
  Transmission Date: 20141212
  Serious: Yes (Hospitalization, Other)
  Sender: FDA-Public Use
  Company Number: DE-ROCHE-1369055

PATIENT
  Age: 73 Year
  Sex: Male
  Weight: 110 kg

DRUGS (6)
  1. ZELBORAF [Suspect]
     Indication: METASTATIC MALIGNANT MELANOMA
     Route: 048
     Dates: start: 20140120, end: 20140318
  2. ZELBORAF [Suspect]
     Indication: MALIGNANT MELANOMA
  3. ETORICOXIB [Concomitant]
     Indication: PAIN
     Route: 048
     Dates: start: 20140120
  4. HYDROMORPHONE [Concomitant]
     Indication: PAIN
     Dosage: 8-0-12 MG
     Route: 048
  5. MIRTAZAPIN [Concomitant]
     Indication: DEPRESSION
     Route: 048
  6. DISALUNIL [Concomitant]
     Indication: HYPERTENSION
     Route: 048

REACTIONS (8)
  - Intestinal perforation [Unknown]
  - Nausea [Unknown]
  - Vomiting [Unknown]
  - Diarrhoea [Unknown]
  - Asthenia [Unknown]
  - Abdominal pain [Unknown]
  - Diverticulum [Unknown]
  - Diverticulitis [Unknown]
